FAERS Safety Report 21660910 (Version 2)
Quarter: 2022Q4

REPORT INFORMATION
  Report Type: Spontaneous
  Country: GB (occurrence: GB)
  Receive Date: 20221130
  Receipt Date: 20221206
  Transmission Date: 20230113
  Serious: Yes (Hospitalization)
  Sender: FDA-Public Use
  Company Number: GB-JNJFOC-20200209260

PATIENT
  Age: 75 Year
  Sex: Female

DRUGS (63)
  1. BORTEZOMIB [Suspect]
     Active Substance: BORTEZOMIB
     Indication: Plasma cell myeloma
     Dosage: 1.45 MG (CYCLE 9 AND BEYOND: ON DAYS 1, 8, 15 AND 22 OF 35 DAY CYCLE);
     Route: 050
     Dates: start: 20171003, end: 20190614
  2. BORTEZOMIB [Suspect]
     Active Substance: BORTEZOMIB
     Indication: Plasma cell myeloma
     Dosage: 1.45 MG (CYCLE 1-8: ON DAYS 1, 4, 8 AND 11 OF 21 DAY CYCLE);
     Route: 050
     Dates: start: 20170530, end: 20170926
  3. BORTEZOMIB [Suspect]
     Active Substance: BORTEZOMIB
     Dosage: 1.05 MG (CYCLE 9 AND BEYOND: ON DAYS 1, 8, 15 AND 22 OF 35 DAY CYCLE);
     Route: 050
     Dates: start: 20191213
  4. BORTEZOMIB [Suspect]
     Active Substance: BORTEZOMIB
     Dosage: 1.05 MG (CYCLE 9 AND BEYOND: ON DAYS 1, 8, 15 AND 22 OF 35 DAY CYCLE);
     Route: 050
     Dates: start: 20190705, end: 20191018
  5. BORTEZOMIB [Suspect]
     Active Substance: BORTEZOMIB
     Dosage: 2 MG (CYCLE 1-8: ON DAYS 1, 4, 8 AND 11 OF 21 DAY CYCLE);
     Route: 050
     Dates: start: 20170404, end: 20170512
  6. DEXAMETHASONE [Suspect]
     Active Substance: DEXAMETHASONE
     Indication: Product used for unknown indication
     Dosage: 20 MG (CYCLE 9 AND BEYOND: ON DAYS 1, 2, 8, 9, 15, 16, 22 AND 23 OF 35 DAY CYCLE);
     Route: 050
     Dates: start: 20171003, end: 20190511
  7. DEXAMETHASONE [Suspect]
     Active Substance: DEXAMETHASONE
     Indication: Product used for unknown indication
  8. VENETOCLAX [Suspect]
     Active Substance: VENETOCLAX
     Indication: Plasma cell myeloma
     Dosage: 400 MG, QD
     Route: 050
     Dates: start: 20191213
  9. VENETOCLAX [Suspect]
     Active Substance: VENETOCLAX
     Indication: Plasma cell myeloma
     Dosage: 800 MG, QD
     Route: 050
     Dates: start: 20170404, end: 20170522
  10. VENETOCLAX [Suspect]
     Active Substance: VENETOCLAX
     Dosage: 600 MG, QD
     Route: 050
     Dates: start: 20170530, end: 20190523
  11. VENETOCLAX [Suspect]
     Active Substance: VENETOCLAX
     Dosage: 400 MG, QD
     Route: 050
     Dates: start: 20170524, end: 20191031
  12. CALCIUM CARBONATE\CHOLECALCIFEROL [Concomitant]
     Active Substance: CALCIUM CARBONATE\CHOLECALCIFEROL
     Indication: Mineral supplementation
     Dosage: UNK
     Route: 048
  13. BECLOMETHASONE DIPROPIONATE [Concomitant]
     Active Substance: BECLOMETHASONE DIPROPIONATE
     Indication: Asthma
     Dosage: 1600 UG, QD
     Route: 050
     Dates: start: 1997
  14. BONJELA [Concomitant]
     Active Substance: CETALKONIUM CHLORIDE\CHOLINE SALICYLATE\MENTHOL
     Indication: Mouth ulceration
     Dosage: 1 DF;
     Route: 050
     Dates: start: 20170619
  15. BONJELA [Concomitant]
     Active Substance: CETALKONIUM CHLORIDE\CHOLINE SALICYLATE\MENTHOL
     Indication: Mouth ulceration
  16. CETIRIZINE [Concomitant]
     Active Substance: CETIRIZINE HYDROCHLORIDE
     Indication: Seasonal allergy
     Dosage: 10 MG;
     Route: 050
     Dates: start: 20170422
  17. CETIRIZINE [Concomitant]
     Active Substance: CETIRIZINE HYDROCHLORIDE
     Indication: Seasonal allergy
  18. CHLORHEXIDINE GLUCONATE [Concomitant]
     Active Substance: CHLORHEXIDINE GLUCONATE
     Indication: Mouth ulceration
     Dosage: 5-10 ML (AS REQUIRED); ;
     Route: 050
     Dates: start: 20170604
  19. CHLORHEXIDINE GLUCONATE [Concomitant]
     Active Substance: CHLORHEXIDINE GLUCONATE
     Indication: Mouth ulceration
  20. COTRIMOXAZOLE [Concomitant]
     Active Substance: SULFAMETHOXAZOLE\TRIMETHOPRIM
     Indication: Infection prophylaxis
     Dosage: 3840 MG, QD
     Route: 050
     Dates: start: 20170417, end: 20170417
  21. COTRIMOXAZOLE [Concomitant]
     Active Substance: SULFAMETHOXAZOLE\TRIMETHOPRIM
     Dosage: 480 MG, QD
     Route: 050
     Dates: start: 20190322, end: 20191004
  22. COTRIMOXAZOLE [Concomitant]
     Active Substance: SULFAMETHOXAZOLE\TRIMETHOPRIM
     Dosage: 480 MG, QD
     Route: 050
     Dates: start: 20191011
  23. COTRIMOXAZOLE [Concomitant]
     Active Substance: SULFAMETHOXAZOLE\TRIMETHOPRIM
     Dosage: 3840 MG, QD
     Route: 050
     Dates: start: 20170419, end: 20170424
  24. BENZYDAMINE [Concomitant]
     Active Substance: BENZYDAMINE
     Indication: Mouth ulceration
     Dosage: 5-10 ML (AS REQUIRED); ;
     Route: 050
     Dates: start: 20170619
  25. BENZYDAMINE [Concomitant]
     Active Substance: BENZYDAMINE
     Indication: Mouth ulceration
  26. FLUDROCORTISONE [Concomitant]
     Active Substance: FLUDROCORTISONE
     Indication: Orthostatic hypotension
     Dosage: 50 UG, QD
     Route: 050
     Dates: start: 20190418
  27. FLUDROCORTISONE [Concomitant]
     Active Substance: FLUDROCORTISONE
     Indication: Orthostatic hypotension
  28. GAVISCON [Concomitant]
     Active Substance: ALUMINUM HYDROXIDE\MAGNESIUM CARBONATE
     Indication: Product used for unknown indication
     Dosage: 5 ML;
     Route: 050
     Dates: start: 20170626
  29. Immunoglobulin [Concomitant]
     Indication: Product used for unknown indication
     Dosage: 30 G, QW
     Route: 050
     Dates: start: 20180514, end: 201811
  30. Immunoglobulin [Concomitant]
     Dosage: 20 G, TIW
     Route: 050
     Dates: start: 20190107
  31. IMODIUM [Concomitant]
     Active Substance: LOPERAMIDE HYDROCHLORIDE
     Indication: Antidiarrhoeal supportive care
     Dosage: 2 MG;
     Route: 050
     Dates: start: 201705
  32. POLYETHYLENE GLYCOL 3350\POTASSIUM CHLORIDE\SODIUM BICARBONATE\SODIUM [Concomitant]
     Active Substance: POLYETHYLENE GLYCOL 3350\POTASSIUM CHLORIDE\SODIUM BICARBONATE\SODIUM CHLORIDE
     Indication: Constipation
     Dosage: 1 DF, PRN;
     Route: 050
     Dates: start: 20190626
  33. LEVOFLOXACIN [Concomitant]
     Active Substance: LEVOFLOXACIN
     Indication: Antibiotic prophylaxis
     Dosage: 500 MG, QD
     Route: 050
     Dates: start: 20191011
  34. LEVOFLOXACIN [Concomitant]
     Active Substance: LEVOFLOXACIN
     Indication: Antibiotic prophylaxis
     Dosage: 500 MG, QD
     Route: 050
     Dates: start: 20190322, end: 20191004
  35. MAGNESIUM [Concomitant]
     Active Substance: MAGNESIUM
     Indication: Muscle spasms
     Dosage: UNK
     Route: 048
  36. MAGNESIUM [Concomitant]
     Active Substance: MAGNESIUM
     Indication: Hypomagnesaemia
     Dosage: 1 DF, QD
     Route: 050
     Dates: start: 20171221, end: 20190506
  37. MAGNESIUM [Concomitant]
     Active Substance: MAGNESIUM
     Dosage: 1 DF, QD
     Route: 050
     Dates: start: 201906
  38. METOCLOPRAMIDE [Concomitant]
     Active Substance: METOCLOPRAMIDE
     Indication: Vomiting
     Dosage: 10 MG, PRN;
     Route: 050
     Dates: start: 20170410
  39. OMEPRAZOLE [Concomitant]
     Active Substance: OMEPRAZOLE
     Indication: Oesophageal ulcer
     Dosage: 80 MG, QD
     Route: 050
     Dates: start: 201710, end: 20181224
  40. OMEPRAZOLE [Concomitant]
     Active Substance: OMEPRAZOLE
     Indication: Oesophageal ulcer
     Dosage: 20 MILLIGRAM, ONCE A DAY
     Route: 050
     Dates: start: 20181228
  41. OMEPRAZOLE [Concomitant]
     Active Substance: OMEPRAZOLE
     Dosage: 20 MG, QD
     Route: 050
     Dates: start: 201609, end: 201710
  42. ACETAMINOPHEN [Concomitant]
     Active Substance: ACETAMINOPHEN
     Indication: Pneumonia
     Dosage: 1 G, PRN;
     Route: 050
     Dates: start: 20170410, end: 20170418
  43. ACETAMINOPHEN [Concomitant]
     Active Substance: ACETAMINOPHEN
     Indication: Arthralgia
     Dosage: 1 G, PRN;
     Route: 050
     Dates: start: 20181221, end: 20181228
  44. ACETAMINOPHEN [Concomitant]
     Active Substance: ACETAMINOPHEN
     Indication: Pain in extremity
     Dosage: 1 G, PRN;
     Route: 050
     Dates: start: 20170505
  45. ACETAMINOPHEN [Concomitant]
     Active Substance: ACETAMINOPHEN
     Indication: Headache
  46. ACETAMINOPHEN [Concomitant]
     Active Substance: ACETAMINOPHEN
     Indication: Lower respiratory tract infection
  47. POTASSIUM CHLORIDE [Concomitant]
     Active Substance: POTASSIUM CHLORIDE
     Indication: Prophylaxis
     Dosage: 1 DF, QD
     Route: 050
     Dates: start: 20180320, end: 20180320
  48. POTASSIUM CHLORIDE [Concomitant]
     Active Substance: POTASSIUM CHLORIDE
     Indication: Hypokalaemia
     Dosage: 3 DF, QD (6 TABLET (2 TABLET,3 IN 1 D))
     Route: 050
     Dates: start: 20181225, end: 20181227
  49. POTASSIUM CHLORIDE [Concomitant]
     Active Substance: POTASSIUM CHLORIDE
     Dosage: 1 DF, QD (2 TABLET,1 IN 1 D)
     Route: 050
     Dates: start: 20181224, end: 20181224
  50. POTASSIUM CHLORIDE [Concomitant]
     Active Substance: POTASSIUM CHLORIDE
     Dosage: 2 DF, QD (4 TABLET (2 TABLET,2 IN 1 D))
     Route: 050
     Dates: start: 20170415, end: 20170415
  51. POTASSIUM CHLORIDE [Concomitant]
     Active Substance: POTASSIUM CHLORIDE
     Dosage: 6 TABLET (2 TABLET,3 IN 1 D); ;
     Route: 050
     Dates: start: 20180321, end: 20180325
  52. POTASSIUM CHLORIDE [Concomitant]
     Active Substance: POTASSIUM CHLORIDE
     Dosage: 2 DF, PRN;
     Route: 050
     Dates: start: 20190523
  53. POTASSIUM CHLORIDE [Concomitant]
     Active Substance: POTASSIUM CHLORIDE
     Dosage: 2 TABLET,1 IN 3 D; ;
     Route: 050
     Dates: start: 20171231, end: 20180104
  54. POTASSIUM CHLORIDE [Concomitant]
     Active Substance: POTASSIUM CHLORIDE
     Dosage: 1 DF, QD (2 TABLET (2 TABLET,1 IN 1 D))
     Route: 050
     Dates: start: 20170412, end: 20170412
  55. POTASSIUM CHLORIDE [Concomitant]
     Active Substance: POTASSIUM CHLORIDE
     Dosage: 1 DF, QD (1 TABLET,1 IN 1 D)
     Route: 050
     Dates: start: 20190117, end: 20190506
  56. ALBUTEROL [Concomitant]
     Active Substance: ALBUTEROL
     Indication: Asthma
     Dosage: 4 PUFF (2 PUFF,2 IN 1 D))
     Route: 048
  57. ALBUTEROL [Concomitant]
     Active Substance: ALBUTEROL
     Indication: Pneumonia
     Dosage: 200 MICROGRAM
     Route: 050
     Dates: end: 20181220
  58. ALBUTEROL [Concomitant]
     Active Substance: ALBUTEROL
     Indication: Lower respiratory tract infection
     Dosage: UNK; ;
     Route: 050
  59. ALBUTEROL [Concomitant]
     Active Substance: ALBUTEROL
     Dosage: 4 PUFF (2 PUFF,2 IN 1 D); ;
     Route: 050
  60. VENTOLIN [Concomitant]
     Active Substance: ALBUTEROL SULFATE
     Indication: Asthma
     Dosage: 2 DOSAGE FORM, QD (4 PUFF (2 PUFF,2 IN 1 D))
     Route: 048
  61. CARBOMER [Concomitant]
     Active Substance: CARBOMER
     Indication: Dry eye
     Dosage: UNK (PER EYE (1 DROP,AS REQUIRED)); ;
     Route: 050
     Dates: start: 20181225
  62. MINERAL OIL\PARAFFIN [Concomitant]
     Active Substance: MINERAL OIL\PARAFFIN
     Indication: Dry skin
     Dosage: 1 DOSAGE FORM;
     Route: 050
     Dates: start: 20181225
  63. ZOMETA [Concomitant]
     Active Substance: ZOLEDRONIC ACID
     Indication: Vertebral lesion
     Dosage: 4 MG, Q4W
     Route: 050
     Dates: start: 201312

REACTIONS (1)
  - Rhinovirus infection [Recovered/Resolved]

NARRATIVE: CASE EVENT DATE: 20191031
